FAERS Safety Report 5854475-1 (Version None)
Quarter: 2008Q3

REPORT INFORMATION
  Report Type: 
  Country: None (occurrence: None)
  Receive Date: 20080822
  Receipt Date: 20080812
  Transmission Date: 20090109
  Serious: Yes (Other)
  Sender: FDA-Public Use
  Company Number: US-PFIZER INC-2008060000

PATIENT
  Sex: Male
  Weight: 88.5 kg

DRUGS (13)
  1. CHANTIX [Suspect]
     Indication: SMOKING CESSATION THERAPY
     Dates: start: 20080703, end: 20080713
  2. CHANTIX [Suspect]
     Indication: CHRONIC OBSTRUCTIVE PULMONARY DISEASE
  3. OTHER ANTIDIARRHOEALS [Concomitant]
  4. ACETYLSALICYLIC ACID SRT [Concomitant]
  5. ZEGERID [Concomitant]
  6. SIMVASTATIN [Concomitant]
  7. ALL OTHER THERAPEUTIC PRODUCTS [Concomitant]
  8. ATENOLOL [Concomitant]
  9. WELLBUTRIN [Concomitant]
  10. XANAX [Concomitant]
  11. NORVASC [Concomitant]
  12. SPIRIVA [Concomitant]
  13. PRILOSEC [Concomitant]

REACTIONS (2)
  - MEMORY IMPAIRMENT [None]
  - MENTAL IMPAIRMENT [None]
